FAERS Safety Report 9624585 (Version 1)
Quarter: 2013Q4

REPORT INFORMATION
  Report Type: Spontaneous
  Country: US (occurrence: US)
  Receive Date: 20131015
  Receipt Date: 20131015
  Transmission Date: 20140711
  Serious: Yes (Other)
  Sender: FDA-Public Use
  Company Number: US-UCBSA-099836

PATIENT
  Sex: Male

DRUGS (6)
  1. VIMPAT [Suspect]
     Indication: CONVULSION
     Dosage: 500 MG DAILY
  2. VIMPAT [Suspect]
     Indication: CONVULSION
     Dosage: TITRATION DOSE
  3. VIMPAT [Suspect]
     Indication: CONVULSION
     Dosage: UPTO 300 TOTAL DAILY DOSE
  4. VIMPAT [Suspect]
     Indication: CONVULSION
     Dosage: 100-300 DOSE
  5. VIMPAT [Suspect]
     Indication: CONVULSION
     Dosage: 100-400 DOSE
  6. OXCARBAZEPINE [Concomitant]

REACTIONS (5)
  - Lupus-like syndrome [Unknown]
  - Splenomegaly [Unknown]
  - Pyrexia [Unknown]
  - Liver function test abnormal [Unknown]
  - Overdose [Unknown]
